FAERS Safety Report 6829628-6 (Version None)
Quarter: 2010Q3

REPORT INFORMATION
  Report Type: 
  Country: None (occurrence: None)
  Receive Date: 20100709
  Receipt Date: 20070423
  Transmission Date: 20110219
  Serious: No
  Sender: FDA-Public Use
  Company Number: US-PFIZER INC-2007014454

PATIENT
  Sex: Male
  Weight: 81.2 kg

DRUGS (5)
  1. CHANTIX [Suspect]
     Indication: SMOKING CESSATION THERAPY
     Route: 048
     Dates: start: 20070212
  2. TYLENOL W/ CODEINE [Concomitant]
     Indication: HEADACHE
  3. DEPAKOTE [Concomitant]
  4. TEGRETOL [Concomitant]
  5. ALBUTEROL [Concomitant]

REACTIONS (1)
  - DIARRHOEA [None]
